FAERS Safety Report 5317106-5 (Version None)
Quarter: 2007Q2

REPORT INFORMATION
  Report Type: 
  Country: None (occurrence: None)
  Receive Date: 20070504
  Receipt Date: 20061031
  Transmission Date: 20071010
  Serious: Yes (Other)
  Sender: FDA-Public Use
  Company Number: JO-ROCHE-494929

PATIENT
  Age: 29 Year
  Sex: Female
  Weight: 55 kg

DRUGS (2)
  1. ROACCUTANE [Suspect]
     Indication: ACNE
     Route: 048
     Dates: start: 20061014, end: 20061015
  2. ROACCUTANE [Suspect]
     Route: 048
     Dates: start: 20060801, end: 20060920

REACTIONS (2)
  - NO ADVERSE EFFECT [None]
  - PREGNANCY [None]
